FAERS Safety Report 18384386 (Version 4)
Quarter: 2021Q4

REPORT INFORMATION
  Report Type: Spontaneous
  Country: US (occurrence: US)
  Receive Date: 20201015
  Receipt Date: 20211008
  Transmission Date: 20220303
  Serious: Yes (Other)
  Sender: FDA-Public Use
  Company Number: US-CIPLA LTD.-2020US07191

PATIENT

DRUGS (3)
  1. ALENDRONATE [Interacting]
     Active Substance: ALENDRONATE SODIUM
     Indication: Bone density abnormal
     Dosage: 70 MILLIGRAM ONCE A WEEK
     Route: 048
     Dates: start: 20200917, end: 20200924
  2. GLIMEPIRIDE [Concomitant]
     Active Substance: GLIMEPIRIDE
     Indication: Diabetes mellitus
     Dosage: 1 MILLIGRAM, BID
     Route: 065
     Dates: start: 2000
  3. LEVOTHYROXINE [Concomitant]
     Active Substance: LEVOTHYROXINE
     Indication: Thyroid disorder
     Dosage: 88 MILLIGRAM, QD
     Route: 065
     Dates: start: 1980

REACTIONS (22)
  - Syncope [Recovered/Resolved]
  - Tremor [Recovered/Resolved]
  - Adverse event [Recovered/Resolved]
  - Headache [Recovered/Resolved]
  - Joint dislocation [Recovered/Resolved]
  - Joint stiffness [Recovered/Resolved]
  - Unevaluable event [Recovered/Resolved]
  - Condition aggravated [Recovered/Resolved]
  - Movement disorder [Recovered/Resolved]
  - Ear pain [Recovered/Resolved]
  - Musculoskeletal stiffness [Not Recovered/Not Resolved]
  - Muscle tightness [Not Recovered/Not Resolved]
  - Ear infection [Recovered/Resolved]
  - Pain [Recovered/Resolved]
  - Bone pain [Recovered/Resolved]
  - Illness [Recovered/Resolved]
  - Asthenia [Recovered/Resolved]
  - Dizziness [Recovered/Resolved]
  - Muscle spasms [Recovered/Resolved]
  - Arthralgia [Recovered/Resolved]
  - Myalgia [Recovered/Resolved]
  - Neck pain [Not Recovered/Not Resolved]

NARRATIVE: CASE EVENT DATE: 20200920
